FAERS Safety Report 8036543-1 (Version None)
Quarter: 2012Q1

REPORT INFORMATION
  Report Type: 
  Country: None (occurrence: None)
  Receive Date: 20120111
  Receipt Date: 20120108
  Transmission Date: 20120608
  Serious: Yes (Hospitalization, Other)
  Sender: FDA-Public Use
  Company Number: US-PFIZER INC-2011000605

PATIENT
  Sex: Female
  Weight: 104 kg

DRUGS (10)
  1. CHANTIX [Suspect]
     Indication: SMOKING CESSATION THERAPY
     Dosage: 0.5 MG DAILY
     Route: 048
     Dates: start: 20090101
  2. CHANTIX [Suspect]
     Dosage: 1 MG, 2X/DAY
     Dates: end: 20110101
  3. CHANTIX [Suspect]
     Dosage: 1 MG, 1X/DAY
     Route: 048
     Dates: start: 20110101
  4. ZOLOFT [Concomitant]
     Indication: DEPRESSION
     Dosage: 150 MG DAILY
  5. LISINOPRIL [Concomitant]
     Indication: HYPERTENSION
     Dosage: 20 MG, 1X/DAY
     Route: 048
     Dates: start: 20100101
  6. PROTONIX [Concomitant]
     Indication: GASTROOESOPHAGEAL REFLUX DISEASE
     Dosage: 40 MG DAILY AT NIGHT
  7. NORVASC [Concomitant]
     Indication: HYPERTENSION
     Dosage: 5 MG, 1X/DAY
     Route: 048
     Dates: start: 20100101
  8. ZETIA [Concomitant]
     Indication: BLOOD CHOLESTEROL INCREASED
     Dosage: UNK, DAILY
     Route: 048
  9. RISPERDAL [Concomitant]
     Indication: THINKING ABNORMAL
     Dosage: 3 MG DAILY
  10. CHANTIX [Suspect]
     Dosage: 0.5 MG DAILY
     Route: 048
     Dates: start: 20101201

REACTIONS (16)
  - CHRONIC OBSTRUCTIVE PULMONARY DISEASE [None]
  - SOMNOLENCE [None]
  - STRESS [None]
  - INCREASED APPETITE [None]
  - OROPHARYNGEAL DISCOMFORT [None]
  - DYSPNOEA [None]
  - BOREDOM [None]
  - INSOMNIA [None]
  - BLOOD PRESSURE INCREASED [None]
  - NERVOUSNESS [None]
  - ABNORMAL DREAMS [None]
  - BIPOLAR DISORDER [None]
  - NASOPHARYNGITIS [None]
  - ANGER [None]
  - WITHDRAWAL SYNDROME [None]
  - COUGH [None]
